FAERS Safety Report 7240854-7 (Version None)
Quarter: 2011Q1

REPORT INFORMATION
  Report Type: 
  Country: None (occurrence: None)
  Receive Date: 20110124
  Receipt Date: 20110119
  Transmission Date: 20110831
  Serious: Yes (Congenital Anomaly)
  Sender: FDA-Public Use
  Company Number: CA-ABBOTT-11P-028-0699069-00

PATIENT

DRUGS (1)
  1. NORVIR [Suspect]
     Indication: DRUG EXPOSURE DURING PREGNANCY

REACTIONS (3)
  - ADACTYLY [None]
  - LIMB MALFORMATION [None]
  - DRUG EXPOSURE DURING PREGNANCY [None]
